FAERS Safety Report 6479797-5 (Version None)
Quarter: 2009Q4

REPORT INFORMATION
  Report Type: 
  Country: None (occurrence: None)
  Receive Date: 20091202
  Receipt Date: 20091116
  Transmission Date: 20100525
  Serious: Yes (Death, Other)
  Sender: FDA-Public Use
  Company Number: 2009-00013

PATIENT
  Age: 72 Year
  Sex: Male

DRUGS (5)
  1. SERTRALINE HCL [Suspect]
     Indication: DEPRESSION
  2. AMANTADINE HCL [Suspect]
     Indication: PARKINSON'S DISEASE
     Dosage: 400 MG, 2 IN 1 D
  3. AMANTADINE HCL [Suspect]
     Dosage: 100 MG, 1 IN 1 D
  4. BACLOFEN [Suspect]
     Dosage: 20 MG, 2 IN 1 D
  5. CO-BENELDOPA (BESERAZIDE HYDROCHLORIDE) [Suspect]
     Indication: PARKINSON'S DISEASE
     Dosage: 2 IN 1 D

REACTIONS (9)
  - BLOOD PRESSURE DECREASED [None]
  - CEREBROVASCULAR ACCIDENT [None]
  - CONDITION AGGRAVATED [None]
  - DEPRESSION [None]
  - FALL [None]
  - FATIGUE [None]
  - HICCUPS [None]
  - HYPONATRAEMIA [None]
  - INSOMNIA [None]
